FAERS Safety Report 19230155 (Version 1)
Quarter: 2021Q2

REPORT INFORMATION
  Report Type: Spontaneous
  Country: US (occurrence: US)
  Receive Date: 20210506
  Receipt Date: 20210506
  Transmission Date: 20210717
  Serious: No
  Sender: FDA-Public Use
  Company Number: None

PATIENT
  Age: 69 Year
  Sex: Female
  Weight: 54 kg

DRUGS (9)
  1. PLENVU [Suspect]
     Active Substance: ASCORBIC ACID\POLYETHYLENE GLYCOL 3350\POTASSIUM CHLORIDE\SODIUM ASCORBATE\SODIUM CHLORIDE\SODIUM SULFATE
     Indication: COLONOSCOPY
     Dosage: ?          QUANTITY:2 QUARTS;OTHER FREQUENCY:ONCE;?
     Route: 048
     Dates: start: 20200908
  2. BUFFERED VITAMIN C [Concomitant]
  3. MAGNESIUM GLYCINATE [Concomitant]
     Active Substance: MAGNESIUM GLYCINATE
  4. PROBIOTIC [Concomitant]
     Active Substance: PROBIOTICS NOS
  5. CALCIUM CITRATE [Concomitant]
     Active Substance: CALCIUM CITRATE
  6. CHEWABLE VITAMIN B12 [Concomitant]
  7. LIQUID VITAMIN D [Concomitant]
  8. HIGH QUALITY DIGESTIVE ENZMES [Concomitant]
  9. LIQUID MULTI MINERALS IN WATER [Concomitant]

REACTIONS (7)
  - Abdominal pain [None]
  - Loss of consciousness [None]
  - Dehydration [None]
  - Nausea [None]
  - Asthenia [None]
  - Headache [None]
  - Feeling abnormal [None]

NARRATIVE: CASE EVENT DATE: 20200909
